FAERS Safety Report 19678331 (Version 1)
Quarter: 2021Q3

REPORT INFORMATION
  Report Type: Spontaneous
  Country: MA (occurrence: MA)
  Receive Date: 20210809
  Receipt Date: 20210809
  Transmission Date: 20211014
  Serious: Yes (Life-Threatening, Other)
  Sender: FDA-Public Use
  Company Number: MA-PFIZER INC-202100942467

PATIENT
  Age: 75 Year
  Sex: Male

DRUGS (11)
  1. OMEPRAZOLE. [Concomitant]
     Active Substance: OMEPRAZOLE
     Indication: GASTROINTESTINAL DISORDER PROPHYLAXIS
     Dosage: 20 MG, DAILY
     Dates: start: 2020
  2. AZITHROMYCIN ANHYDROUS. [Suspect]
     Active Substance: AZITHROMYCIN ANHYDROUS
     Dosage: 250 MG, DAILY (FROM DAY 2 TO DAY 7)
     Dates: start: 2020
  3. IRBESARTAN. [Concomitant]
     Active Substance: IRBESARTAN
     Indication: HYPERTENSION
     Dosage: UNK
  4. ASPIRIN [ACETYLSALICYLIC ACID] [Concomitant]
     Active Substance: ASPIRIN
     Indication: ISCHAEMIC STROKE
     Dosage: UNK
  5. POTASSIUM [Concomitant]
     Active Substance: POTASSIUM
     Indication: MINERAL SUPPLEMENTATION
     Dosage: UNK
     Route: 048
     Dates: start: 2020
  6. ENOXAPARIN [Concomitant]
     Active Substance: ENOXAPARIN
     Indication: THROMBOSIS PROPHYLAXIS
     Dosage: 20 MG, 1X/DAY
     Route: 058
     Dates: start: 2020
  7. HYDROXYCHLOROQUINE [Suspect]
     Active Substance: HYDROXYCHLOROQUINE
     Indication: COVID-19
     Dosage: 600 MG, DAILY
     Dates: start: 2020
  8. AMLODIPINE [Concomitant]
     Active Substance: AMLODIPINE BESYLATE
     Indication: HYPERTENSION
     Dosage: UNK
  9. ENOXAPARIN [Concomitant]
     Active Substance: ENOXAPARIN
     Dosage: 40 MG, 1X/DAY
     Route: 058
     Dates: start: 2020
  10. OXYGEN. [Concomitant]
     Active Substance: OXYGEN
     Indication: HYPERBARIC OXYGEN THERAPY
     Dosage: UNK
     Dates: start: 2020
  11. AZITHROMYCIN ANHYDROUS. [Suspect]
     Active Substance: AZITHROMYCIN ANHYDROUS
     Indication: COVID-19
     Dosage: 500 MG, DAILY (500 MG/DAY AT DAY 1)
     Dates: start: 2020

REACTIONS (3)
  - Ischaemic cardiomyopathy [Unknown]
  - Ischaemic stroke [Unknown]
  - Off label use [Unknown]

NARRATIVE: CASE EVENT DATE: 2020
